FAERS Safety Report 6786231-4 (Version None)
Quarter: 2010Q2

REPORT INFORMATION
  Report Type: 
  Country: None (occurrence: None)
  Receive Date: 20100623
  Receipt Date: 20100614
  Transmission Date: 20101027
  Serious: Yes (Hospitalization)
  Sender: FDA-Public Use
  Company Number: DE-ROCHE-543046

PATIENT
  Sex: Female
  Weight: 60 kg

DRUGS (11)
  1. BEVACIZUMAB [Suspect]
     Dosage: DOSAGE FORM REPORTED AS: 10MG/KG.
     Route: 042
     Dates: start: 20070807, end: 20071002
  2. BEVACIZUMAB [Suspect]
     Route: 042
     Dates: start: 20071120
  3. PACLITAXEL [Suspect]
     Dosage: DOSAGE FORM REPORTED AS 80MG/M2.
     Route: 042
     Dates: start: 20070731, end: 20071120
  4. ZOFRAN [Concomitant]
  5. FORTECORTIN [Concomitant]
  6. LORAZEPAM [Concomitant]
     Dates: start: 20070904
  7. MEPROLOL [Concomitant]
  8. AMLODIPINE [Concomitant]
  9. SIMVASTIN [Concomitant]
  10. NOVAMINSULFON [Concomitant]
     Dates: start: 20070717
  11. IBUPROFEN [Concomitant]
     Dates: start: 20070707

REACTIONS (1)
  - GENERAL PHYSICAL HEALTH DETERIORATION [None]
